FAERS Safety Report 5586469-8 (Version None)
Quarter: 2008Q1

REPORT INFORMATION
  Report Type: 
  Country: None (occurrence: None)
  Receive Date: 20080108
  Receipt Date: 20080108
  Transmission Date: 20080703
  Serious: Yes (Other)
  Sender: FDA-Public Use
  Company Number: None

PATIENT
  Age: 59 Year
  Sex: Male
  Weight: 86.1834 kg

DRUGS (1)
  1. CHANTIX [Suspect]
     Indication: SMOKING CESSATION THERAPY
     Dosage: 0.5 MG 2 A DAY FOR 7 DAY PO  : 1.0 MG 2 A DAY FOR 6 WEEK PO
     Route: 048
     Dates: start: 20071019, end: 20071028

REACTIONS (3)
  - ASTHENIA [None]
  - DEPRESSION [None]
  - LETHARGY [None]
